FAERS Safety Report 8863064 (Version 2)
Quarter: 2012Q4

REPORT INFORMATION
  Report Type: 
  Country: JP (occurrence: JP)
  Receive Date: 20121026
  Receipt Date: 20121115
  Transmission Date: 20130627
  Serious: Yes (Other)
  Sender: FDA-Public Use
  Company Number: JP-SANOFI-AVENTIS-2012SA076496

PATIENT
  Age: 71 Year
  Sex: Male

DRUGS (8)
  1. DOCETAXEL [Suspect]
     Indication: LARGE CELL LUNG CANCER
     Route: 065
  2. OXYCODONE [Suspect]
     Indication: PAIN
     Dosage: upto 150 mg/day
     Route: 065
  3. OXYCODONE [Suspect]
     Indication: PAIN
     Route: 065
  4. SULFAMETHOXAZOLE/TRIMETHOPRIM [Suspect]
     Indication: PROPHYLAXIS
     Route: 065
  5. ALLOPURINOL [Concomitant]
  6. ALLOPURINOL [Concomitant]
  7. LOXOPROFEN [Concomitant]
     Indication: PAIN
  8. ACETAMINOPHEN [Concomitant]

REACTIONS (5)
  - Interstitial lung disease [Recovering/Resolving]
  - Respiratory depression [Recovering/Resolving]
  - Somnolence [Recovering/Resolving]
  - Hyperkalaemia [Recovering/Resolving]
  - Blood creatinine increased [Recovering/Resolving]
